FAERS Safety Report 20263230 (Version 1)
Quarter: 2021Q4

REPORT INFORMATION
  Report Type: Spontaneous
  Country: US (occurrence: US)
  Receive Date: 20211231
  Receipt Date: 20211231
  Transmission Date: 20220303
  Serious: Yes (Death, Other)
  Sender: FDA-Public Use
  Company Number: US-NOVARTISPH-NVSC2021US298591

PATIENT
  Age: 83 Year
  Sex: Male

DRUGS (2)
  1. RANITIDINE [Suspect]
     Active Substance: RANITIDINE
     Indication: Gastrooesophageal reflux disease
     Dosage: 300 MG, QD
     Route: 065
     Dates: end: 201809
  2. RANITIDINE [Suspect]
     Active Substance: RANITIDINE
     Indication: Gastrooesophageal reflux disease
     Dosage: 300 MG, QD
     Route: 065
     Dates: end: 201809

REACTIONS (3)
  - Death [Fatal]
  - Lung carcinoma cell type unspecified stage IV [Recovering/Resolving]
  - Pancreatic carcinoma stage IV [Recovering/Resolving]

NARRATIVE: CASE EVENT DATE: 20191101
